FAERS Safety Report 8365738-2 (Version None)
Quarter: 2012Q2

REPORT INFORMATION
  Report Type: 
  Country: None (occurrence: None)
  Receive Date: 20120516
  Receipt Date: 20111103
  Transmission Date: 20120825
  Serious: Yes (Hospitalization)
  Sender: FDA-Public Use
  Company Number: PHHO2011ZM018520

PATIENT
  Sex: Male
  Weight: 1.45 kg

DRUGS (1)
  1. ARTEMETHER,BENFLUMETOL [Suspect]
     Indication: MALARIA
     Route: 064

REACTIONS (3)
  - FOETAL EXPOSURE DURING PREGNANCY [None]
  - PREMATURE BABY [None]
  - LOW BIRTH WEIGHT BABY [None]
